FAERS Safety Report 14892710 (Version 1)
Quarter: 2018Q2

REPORT INFORMATION
  Report Type: Spontaneous
  Country: GB (occurrence: GB)
  Receive Date: 20180426
  Receipt Date: 20180426
  Transmission Date: 20180711
  Serious: Yes (Disabling, Other)
  Sender: FDA-Public Use
  Company Number: None

PATIENT
  Age: 32 Year
  Weight: 56.7 kg

DRUGS (1)
  1. MIRENA [Suspect]
     Active Substance: LEVONORGESTREL
     Indication: DRUG THERAPY
     Dosage: ?          QUANTITY:1 IUD;OTHER FREQUENCY:IUD;?
     Route: 067

REACTIONS (7)
  - Psychotic disorder [None]
  - Hallucination, visual [None]
  - Adrenal disorder [None]
  - Vertigo [None]
  - Anxiety [None]
  - Paraesthesia [None]
  - Rash [None]

NARRATIVE: CASE EVENT DATE: 20180101
